FAERS Safety Report 6083669-8 (Version None)
Quarter: 2009Q1

REPORT INFORMATION
  Report Type: 
  Country: None (occurrence: None)
  Receive Date: 20090219
  Receipt Date: 20090217
  Transmission Date: 20090719
  Serious: Yes (Death)
  Sender: FDA-Public Use
  Company Number: NL-ABBOTT-09P-114-0557567-00

PATIENT
  Sex: Female

DRUGS (7)
  1. HUMIRA [Suspect]
     Indication: RHEUMATOID ARTHRITIS
     Route: 058
     Dates: start: 20051001, end: 20080101
  2. HUMIRA [Suspect]
     Indication: SPONDYLOARTHROPATHY
  3. HUMIRA [Suspect]
     Indication: POLYARTHRITIS
  4. PREDNISOLOL [Concomitant]
     Indication: POLYARTHRITIS
  5. OXAZEPAM [Concomitant]
     Indication: DRUG USE FOR UNKNOWN INDICATION
  6. SIMVASTATIN [Concomitant]
     Indication: DRUG USE FOR UNKNOWN INDICATION
  7. NAPROXEN [Concomitant]
     Indication: DRUG USE FOR UNKNOWN INDICATION

REACTIONS (6)
  - DEHYDRATION [None]
  - DIABETES MELLITUS [None]
  - HYPOKALAEMIA [None]
  - INFECTION [None]
  - PANCYTOPENIA [None]
  - VOMITING [None]
